FAERS Safety Report 14352176 (Version 1)
Quarter: 2018Q1

REPORT INFORMATION
  Report Type: Spontaneous
  Country: US (occurrence: US)
  Receive Date: 20180104
  Receipt Date: 20180104
  Transmission Date: 20180509
  Serious: No
  Sender: FDA-Public Use
  Company Number: US-ALLERGAN-1717596US

PATIENT
  Sex: Male

DRUGS (1)
  1. ACZONE [Suspect]
     Active Substance: DAPSONE
     Indication: FOLLICULITIS
     Dosage: UNK, BID
     Route: 061
     Dates: end: 201704

REACTIONS (4)
  - Application site scab [Unknown]
  - Application site pain [Unknown]
  - Application site vesicles [Unknown]
  - Off label use [Unknown]
